FAERS Safety Report 6464557-1 (Version None)
Quarter: 2009Q4

REPORT INFORMATION
  Report Type: 
  Country: None (occurrence: None)
  Receive Date: 20091201
  Receipt Date: 20091123
  Transmission Date: 20100525
  Serious: Yes (Disabling, Other)
  Sender: FDA-Public Use
  Company Number: BR-PFIZER INC-2009288431

PATIENT
  Age: 11 Year
  Sex: Female
  Weight: 60 kg

DRUGS (3)
  1. SILDENAFIL CITRATE [Suspect]
     Indication: PULMONARY HYPERTENSION
     Dosage: 40 MG, 3X/DAY, EVERY 8 HOURS
     Route: 048
     Dates: start: 20090917
  2. CLOBAZAM [Concomitant]
     Dosage: 2.5 MG, DAILY
     Dates: start: 20060101
  3. OXCARBAZEPINE [Concomitant]
     Dosage: 600 MG, 3X/DAY, EVERY 8 HOURS
     Dates: start: 20060101

REACTIONS (3)
  - CONVULSION [None]
  - HEADACHE [None]
  - MYALGIA [None]
